FAERS Safety Report 5452152-2 (Version None)
Quarter: 2007Q3

REPORT INFORMATION
  Report Type: 
  Country: None (occurrence: None)
  Receive Date: 20070912
  Receipt Date: 20070912
  Transmission Date: 20080115
  Serious: Yes (Other)
  Sender: FDA-Public Use
  Company Number: None

PATIENT
  Age: 59 Year
  Sex: Female
  Weight: 49.4421 kg

DRUGS (1)
  1. CREST PROHEALTH CINNAMON TOOTHPASTE [Suspect]
     Dosage: TWICE DAILY

REACTIONS (2)
  - ORAL MUCOSAL EXFOLIATION [None]
  - PHARMACEUTICAL PRODUCT COMPLAINT [None]
